FAERS Safety Report 21490783 (Version 1)
Quarter: 2022Q4

REPORT INFORMATION
  Report Type: Spontaneous
  Country: US (occurrence: US)
  Receive Date: 20221021
  Receipt Date: 20221021
  Transmission Date: 20230112
  Serious: Yes (Hospitalization, Other)
  Sender: FDA-Public Use
  Company Number: US-JNJFOC-20221031370

PATIENT
  Sex: Female

DRUGS (1)
  1. NEUTROGENA ULTRA SHEER DRY TOUCH SUNSCREEN BROAD SPECTRUM SPF 70 [Suspect]
     Active Substance: AVOBENZONE\HOMOSALATE\OCTISALATE\OCTOCRYLENE
     Indication: Prophylaxis against solar radiation
     Dosage: JUST ENOUGH TO COVER ARMS AND CHEST, WHENEVER GO OUT
     Route: 061
     Dates: start: 20210601

REACTIONS (1)
  - Skin cancer [Unknown]
